FAERS Safety Report 4615081-X (Version None)
Quarter: 2005Q1

REPORT INFORMATION
  Report Type: 
  Country: None (occurrence: None)
  Receive Date: 20050318
  Receipt Date: 20050318
  Transmission Date: 20050727
  Serious: Yes (Death)
  Sender: FDA-Public Use
  Company Number: None

PATIENT
  Age: 57 Year
  Sex: Female
  Weight: 54.4316 kg

DRUGS (3)
  1. PAXIL CR [Suspect]
     Indication: DEPRESSION
     Dosage: MIN DOSE
  2. CLONAZEPAM [Suspect]
     Dosage: MIN DOSE
  3. SYNTHROID [Concomitant]

REACTIONS (2)
  - COMPLETED SUICIDE [None]
  - SEROTONIN SYNDROME [None]
